FAERS Safety Report 5328959-9 (Version None)
Quarter: 2007Q2

REPORT INFORMATION
  Report Type: 
  Country: None (occurrence: None)
  Receive Date: 20070518
  Receipt Date: 20070510
  Transmission Date: 20071010
  Serious: Yes (Other)
  Sender: FDA-Public Use
  Company Number: US-SANOFI-SYNTHELABO-A03200700366

PATIENT
  Sex: Male
  Weight: 93 kg

DRUGS (5)
  1. TRAZODONE HCL [Concomitant]
     Dosage: UNK
     Route: 048
  2. SEROQUEL [Concomitant]
     Dosage: TOOK 100 MG AT 4 PM
     Route: 048
     Dates: start: 20070113
  3. AMBIEN CR [Suspect]
     Indication: SLEEP APNOEA SYNDROME
     Route: 048
     Dates: start: 20070113, end: 20070114
  4. OXYBUTYNIN CHLORIDE [Concomitant]
     Dosage: TOOK 5 MG AT 4 PM
     Route: 048
     Dates: start: 20070113
  5. SINGULAIR [Concomitant]
     Dosage: TOOK 10 MG AT 4 PM
     Route: 048
     Dates: start: 20070113

REACTIONS (6)
  - AMNESIA [None]
  - CONFUSIONAL STATE [None]
  - CONTUSION [None]
  - DIZZINESS [None]
  - FEELING ABNORMAL [None]
  - ROAD TRAFFIC ACCIDENT [None]
